FAERS Safety Report 7297870-9 (Version None)
Quarter: 2011Q1

REPORT INFORMATION
  Report Type: 
  Country: None (occurrence: None)
  Receive Date: 20110207
  Receipt Date: 20110128
  Transmission Date: 20110831
  Serious: Yes (Other)
  Sender: FDA-Public Use
  Company Number: JPI-P-013696

PATIENT
  Age: 62 Year
  Sex: Female
  Weight: 77.1115 kg

DRUGS (2)
  1. XYREM [Suspect]
     Indication: NARCOLEPSY
     Dosage: (7.5 GM (3.75 GM, 2 IN 1 D), ORAL) (4.5 GM (2.25 GM, 2 IN 1 D), ORAL) (6.5 GM (3.25 GM, 2 IN 1 D),
     Route: 048
     Dates: start: 20070701
  2. DEXEDRINE [Concomitant]

REACTIONS (8)
  - SLEEP PARALYSIS [None]
  - MIDDLE INSOMNIA [None]
  - NAUSEA [None]
  - HYPERHIDROSIS [None]
  - FALL [None]
  - FOOT FRACTURE [None]
  - HALLUCINATION [None]
  - DIZZINESS [None]
